FAERS Safety Report 6829791-7 (Version None)
Quarter: 2010Q3

REPORT INFORMATION
  Report Type: 
  Country: None (occurrence: None)
  Receive Date: 20100709
  Receipt Date: 20070910
  Transmission Date: 20110219
  Serious: Yes (Other)
  Sender: FDA-Public Use
  Company Number: US-PFIZER INC-2007016554

PATIENT
  Sex: Female
  Weight: 89.8 kg

DRUGS (1)
  1. CHANTIX [Suspect]
     Indication: SMOKING CESSATION THERAPY
     Dates: start: 20070201

REACTIONS (10)
  - AGITATION [None]
  - DIARRHOEA [None]
  - DISCOMFORT [None]
  - DYSGEUSIA [None]
  - FLATULENCE [None]
  - GASTRITIS [None]
  - RETCHING [None]
  - SLEEP DISORDER [None]
  - SOMNOLENCE [None]
  - WEIGHT INCREASED [None]
